FAERS Safety Report 5526436-3 (Version None)
Quarter: 2007Q4

REPORT INFORMATION
  Report Type: 
  Country: None (occurrence: None)
  Receive Date: 20071121
  Receipt Date: 20071121
  Transmission Date: 20080405
  Serious: No
  Sender: FDA-Public Use
  Company Number: None

PATIENT
  Age: 59 Year
  Sex: Male

DRUGS (1)
  1. MORPHINE [Suspect]
     Indication: PAIN
     Dosage: 15MG BID PO
     Route: 048
     Dates: start: 20070305, end: 20070408

REACTIONS (2)
  - PRURITUS [None]
  - URTICARIA [None]
